FAERS Safety Report 4526006-X (Version None)
Quarter: 2004Q4

REPORT INFORMATION
  Report Type: 
  Country: None (occurrence: None)
  Receive Date: 20041129
  Receipt Date: 20040917
  Transmission Date: 20050328
  Serious: Yes (Hospitalization, Other)
  Sender: FDA-Public Use
  Company Number: USA040978694

PATIENT
  Age: 6 Year

DRUGS (1)
  1. ZYPREXA [Suspect]

REACTIONS (4)
  - BLOOD PRESSURE FLUCTUATION [None]
  - CONVULSION [None]
  - PARKINSONISM [None]
  - PRESCRIBED OVERDOSE [None]
